FAERS Safety Report 13411967 (Version 3)
Quarter: 2017Q2

REPORT INFORMATION
  Report Type: Spontaneous
  Country: JP (occurrence: JP)
  Receive Date: 20170406
  Receipt Date: 20170607
  Transmission Date: 20170830
  Serious: Yes (Other)
  Sender: FDA-Public Use
  Company Number: JP-PFIZER INC-2017144792

PATIENT
  Age: 77 Year
  Sex: Female

DRUGS (2)
  1. CELECOX [Suspect]
     Active Substance: CELECOXIB
     Indication: SCIATICA
     Dosage: 200 MG, DAILY
     Route: 048
     Dates: start: 20151007, end: 20161004
  2. LYRICA [Suspect]
     Active Substance: PREGABALIN
     Indication: SCIATICA
     Dosage: 150 MG, DAILY
     Route: 048
     Dates: start: 20140723, end: 20161004

REACTIONS (2)
  - Fall [Recovered/Resolved]
  - Hand fracture [Recovered/Resolved]

NARRATIVE: CASE EVENT DATE: 20160119
